FAERS Safety Report 21979730 (Version 4)
Quarter: 2024Q1

REPORT INFORMATION
  Report Type: Spontaneous
  Country: US (occurrence: US)
  Receive Date: 20230210
  Receipt Date: 20240326
  Transmission Date: 20240410
  Serious: Yes (Other)
  Sender: FDA-Public Use
  Company Number: US-INCYTE CORPORATION-2023IN001284

PATIENT

DRUGS (4)
  1. JAKAFI [Suspect]
     Active Substance: RUXOLITINIB
     Indication: Polycythaemia vera
     Dosage: 10 MILLIGRAM, BID
     Route: 048
     Dates: start: 20170331
  2. JAKAFI [Suspect]
     Active Substance: RUXOLITINIB
     Dosage: 10MG EVERY MORNING, 5MG EVERY EVENING
     Route: 048
     Dates: start: 20170331
  3. JAKAFI [Suspect]
     Active Substance: RUXOLITINIB
     Dosage: 10 MILLIGRAM, BID
     Route: 048
     Dates: start: 20170331
  4. JAKAFI [Suspect]
     Active Substance: RUXOLITINIB
     Dosage: 10 MILLIGRAM, BID
     Route: 048
     Dates: start: 20170331

REACTIONS (8)
  - Skin cancer [Unknown]
  - Illness [Unknown]
  - Pruritus [Unknown]
  - Anxiety [Unknown]
  - Frustration tolerance decreased [Unknown]
  - Product availability issue [Unknown]
  - Product dose omission issue [Unknown]
  - Dyspnoea [Unknown]
